FAERS Safety Report 9322051 (Version 3)
Quarter: 2013Q4

REPORT INFORMATION
  Report Type: Report from Study
  Country: US (occurrence: US)
  Receive Date: 20130531
  Receipt Date: 20131028
  Transmission Date: 20140711
  Serious: Yes (Other)
  Sender: FDA-Public Use
  Company Number: US-JNJFOC-20130516063

PATIENT
  Age: 51 Year
  Sex: Female
  Weight: 63.2 kg

DRUGS (17)
  1. CISAPRIDE [Suspect]
     Indication: IMPAIRED GASTRIC EMPTYING
     Route: 048
  2. OMEPRAZOLE [Concomitant]
     Route: 065
  3. PROPRANOLOL [Concomitant]
     Route: 065
  4. PREMARIN [Concomitant]
     Route: 065
  5. RESTASIS [Concomitant]
     Route: 065
  6. ESTRADIOL [Concomitant]
     Route: 065
  7. CALCIUM [Concomitant]
     Route: 065
  8. VITAMIN C [Concomitant]
     Route: 065
  9. VALIUM [Concomitant]
     Route: 065
  10. CELEXA [Concomitant]
     Route: 065
  11. TRILEPTAL [Concomitant]
     Route: 065
  12. GABAPENTIN [Concomitant]
     Route: 065
  13. LIPITOR [Concomitant]
     Indication: HYPERLIPIDAEMIA
     Route: 065
  14. IMODIUM [Concomitant]
     Route: 065
  15. PLAVIX [Concomitant]
     Indication: CEREBROVASCULAR ACCIDENT PROPHYLAXIS
     Route: 065
     Dates: start: 20121017
  16. LIPITOR [Concomitant]
     Indication: HYPERLIPIDAEMIA
     Route: 065
     Dates: start: 20121017
  17. MELATONIN [Concomitant]
     Indication: INSOMNIA
     Dosage: QHS (EVERY EVENING OR BEDTIME)
     Route: 065
     Dates: start: 20121205

REACTIONS (1)
  - Electrocardiogram QT prolonged [Recovered/Resolved]
